FAERS Safety Report 24119196 (Version 1)
Quarter: 2024Q3

REPORT INFORMATION
  Report Type: Spontaneous
  Country: US (occurrence: None)
  Receive Date: 20240718
  Receipt Date: 20240718
  Transmission Date: 20241017
  Serious: No
  Sender: Public
  Company Number: None

PATIENT
  Age: 66 Year
  Sex: Female

DRUGS (1)
  1. AMBRISENTAN [Suspect]
     Active Substance: AMBRISENTAN
     Indication: Pulmonary arterial hypertension
     Dosage: FREQUENCY : DAILY;?
     Route: 048

REACTIONS (6)
  - Nasal congestion [None]
  - Throat irritation [None]
  - Cough [None]
  - Autonomic nervous system imbalance [None]
  - Wheezing [None]
  - Sputum increased [None]

NARRATIVE: CASE EVENT DATE: 20240718
